FAERS Safety Report 10230075 (Version 1)
Quarter: 2014Q2

REPORT INFORMATION
  Report Type: Spontaneous
  Country: US (occurrence: US)
  Receive Date: 20140611
  Receipt Date: 20140611
  Transmission Date: 20141212
  Serious: No
  Sender: FDA-Public Use
  Company Number: US-PFIZER INC-2014155385

PATIENT
  Age: 84 Year
  Sex: Female

DRUGS (7)
  1. DIFLUCAN [Suspect]
     Dosage: UNK
  2. CARDIZEM [Suspect]
     Dosage: UNK
  3. FENTANYL [Suspect]
     Dosage: UNK
  4. PERCOCET [Suspect]
     Dosage: UNK
  5. MONOPRIL [Suspect]
     Dosage: UNK
  6. NIACIN [Suspect]
     Dosage: UNK
  7. TAPENTADOL HYDROCHLORIDE [Suspect]
     Dosage: UNK

REACTIONS (1)
  - Drug hypersensitivity [Unknown]
